FAERS Safety Report 10011964 (Version 3)
Quarter: 2014Q2

REPORT INFORMATION
  Report Type: Report from Study
  Country: DE (occurrence: DE)
  Receive Date: 20140314
  Receipt Date: 20140421
  Transmission Date: 20141212
  Serious: Yes (Hospitalization)
  Sender: FDA-Public Use
  Company Number: DE-SA-2014SA005148

PATIENT
  Age: 35 Year
  Sex: Female

DRUGS (5)
  1. AUBAGIO [Suspect]
     Indication: MULTIPLE SCLEROSIS
     Route: 048
     Dates: start: 20131221
  2. METHYLPREDNISOLONE [Concomitant]
     Indication: MULTIPLE SCLEROSIS RELAPSE
     Route: 042
  3. CITALOPRAM [Concomitant]
     Indication: DEPRESSION
  4. FAMPYRA [Concomitant]
     Indication: MULTIPLE SCLEROSIS
  5. TOLPERISONE [Concomitant]
     Indication: MULTIPLE SCLEROSIS

REACTIONS (5)
  - Bladder dysfunction [Not Recovered/Not Resolved]
  - Cystitis noninfective [Not Recovered/Not Resolved]
  - Nausea [Recovering/Resolving]
  - Weight decreased [Recovering/Resolving]
  - Alopecia [Recovered/Resolved]
